FAERS Safety Report 26051851 (Version 1)
Quarter: 2025Q4

REPORT INFORMATION
  Report Type: Spontaneous
  Country: CA (occurrence: CA)
  Receive Date: 20251117
  Receipt Date: 20251117
  Transmission Date: 20260117
  Serious: Yes (Other)
  Sender: ROCHE
  Company Number: CA-ROCHE-10000434206

PATIENT
  Age: 40 Year
  Sex: Male

DRUGS (1)
  1. OCREVUS [Suspect]
     Active Substance: OCRELIZUMAB
     Indication: Product used for unknown indication
     Route: 042

REACTIONS (5)
  - Suicidal ideation [Unknown]
  - Depression [Unknown]
  - Attention deficit hyperactivity disorder [Unknown]
  - Pain in extremity [Unknown]
  - Tinnitus [Unknown]

NARRATIVE: CASE EVENT DATE: 20250601
